FAERS Safety Report 22536545 (Version 2)
Quarter: 2023Q2

REPORT INFORMATION
  Report Type: Spontaneous
  Country: US (occurrence: US)
  Receive Date: 20230608
  Receipt Date: 20230623
  Transmission Date: 20230721
  Serious: Yes (Other)
  Sender: FDA-Public Use
  Company Number: US-AMERICAN REGENT INC-2023001363

PATIENT
  Age: 78 Year
  Sex: Male
  Weight: 80.8 kg

DRUGS (6)
  1. VENOFER [Suspect]
     Active Substance: IRON SUCROSE
     Indication: Anaemia
     Dosage: 100 MILLIGRAM, 1 IN 1 DAY
     Dates: start: 20230209, end: 20230303
  2. MIRCERA [Suspect]
     Active Substance: METHOXY POLYETHYLENE GLYCOL-EPOETIN BETA
     Indication: Nephrogenic anaemia
     Dosage: 100 MICROGRAM, 1 IN 2 WEEKS
     Dates: start: 20230218, end: 20230218
  3. HEPARIN SODIUM [Concomitant]
     Active Substance: HEPARIN SODIUM
     Indication: Anticoagulant therapy
     Dosage: 4000 INTERNATIONAL UNIT
     Dates: start: 20230209, end: 20230331
  4. HEPARIN SODIUM [Concomitant]
     Active Substance: HEPARIN SODIUM
     Indication: Dialysis
  5. CLONIDINE HYDROCHLORIDE [Concomitant]
     Active Substance: CLONIDINE HYDROCHLORIDE
     Indication: Hypertension
     Dosage: 0.1 MILLIGRAM
     Route: 048
     Dates: start: 20230218, end: 20230218
  6. DOXERCALCIFEROL [Concomitant]
     Active Substance: DOXERCALCIFEROL
     Indication: Hyperparathyroidism
     Dosage: 4 MICROGRAM, (DAILY)
     Dates: start: 20230209, end: 20230331

REACTIONS (2)
  - Drug hypersensitivity [Recovered/Resolved]
  - Off label use [Unknown]

NARRATIVE: CASE EVENT DATE: 20230209
